FAERS Safety Report 9556303 (Version 1)
Quarter: 2013Q3

REPORT INFORMATION
  Report Type: Spontaneous
  Country: US (occurrence: None)
  Receive Date: 20130815
  Receipt Date: 20130815
  Transmission Date: 20140515
  Serious: Yes (Other)
  Sender: FDA-Public Use
  Company Number: ADR-2013-00423

PATIENT
  Sex: Female

DRUGS (4)
  1. BACLOFEN [Suspect]
  2. FENTANYL [Suspect]
  3. BUPIVACAINE [Concomitant]
  4. DILAUDID (HYDROMORPHONE) [Concomitant]

REACTIONS (6)
  - Confusional state [None]
  - Dizziness [None]
  - Somnolence [None]
  - Heart rate increased [None]
  - Blood pressure increased [None]
  - Dysarthria [None]
